FAERS Safety Report 11413312 (Version 1)
Quarter: 2015Q3

REPORT INFORMATION
  Report Type: Spontaneous
  Country: None (occurrence: CN)
  Receive Date: 20150824
  Receipt Date: 20150824
  Transmission Date: 20151125
  Serious: Yes (Other)
  Sender: FDA-Public Use
  Company Number: CN-MERCKDARMSTADT-8005824

PATIENT

DRUGS (1)
  1. NOVOTHYROX [Suspect]
     Active Substance: LEVOTHYROXINE SODIUM

REACTIONS (7)
  - Aspartate aminotransferase increased [None]
  - Thyroid function test abnormal [None]
  - Liver injury [None]
  - Head discomfort [None]
  - Abdominal discomfort [None]
  - Alanine aminotransferase increased [None]
  - Cardiac discomfort [None]
